FAERS Safety Report 9185432 (Version 2)
Quarter: 2013Q2

REPORT INFORMATION
  Report Type: Spontaneous
  Country: US (occurrence: US)
  Receive Date: 20130325
  Receipt Date: 20130513
  Transmission Date: 20140414
  Serious: No
  Sender: FDA-Public Use
  Company Number: US-JNJFOC-20130214922

PATIENT
  Age: 22 Year
  Sex: Male
  Weight: 153.77 kg

DRUGS (1)
  1. INVEGA SUSTENNA [Suspect]
     Indication: BIPOLAR DISORDER
     Route: 030
     Dates: start: 20100409

REACTIONS (1)
  - Drug dose omission [Recovered/Resolved]
